FAERS Safety Report 9307104 (Version 1)
Quarter: 2013Q2

REPORT INFORMATION
  Report Type: Spontaneous
  Country: CA (occurrence: CA)
  Receive Date: 20130524
  Receipt Date: 20130524
  Transmission Date: 20140414
  Serious: Yes (Hospitalization, Other)
  Sender: FDA-Public Use
  Company Number: CA-009507513-1305CAN013726

PATIENT
  Age: 77 Year
  Sex: Male

DRUGS (1)
  1. CORICIDIN HBP FLU [Suspect]
     Indication: PRODUCT USED FOR UNKNOWN INDICATION

REACTIONS (6)
  - Stevens-Johnson syndrome [Unknown]
  - Blister [Unknown]
  - Erythema [Unknown]
  - Blister rupture [Unknown]
  - Skin exfoliation [Unknown]
  - Prerenal failure [Unknown]
